FAERS Safety Report 8813283 (Version 1)
Quarter: 2012Q4

REPORT INFORMATION
  Report Type: 
  Country: US (occurrence: US)
  Receive Date: 20120927
  Receipt Date: 20120927
  Transmission Date: 20130627
  Serious: No
  Sender: FDA-Public Use
  Company Number: US-AMGEN-USASP2012037547

PATIENT
  Sex: Female
  Weight: 61.68 kg

DRUGS (6)
  1. PROLIA [Suspect]
     Indication: OSTEOPOROSIS POSTMENOPAUSAL
     Dosage: 60 mg, q6mo
     Route: 058
     Dates: start: 20120320
  2. ATENOLOL [Concomitant]
     Dosage: 100 mg, qd
     Route: 048
  3. DIOVAN [Concomitant]
     Route: 048
  4. MINOXIDIL [Concomitant]
     Dosage: 10 mg, UNK
     Route: 048
  5. THYROID [Concomitant]
  6. VITAMIN D3 [Concomitant]

REACTIONS (3)
  - Rash maculo-papular [Unknown]
  - Rash pruritic [Unknown]
  - Urticaria [Recovered/Resolved]
